FAERS Safety Report 5048074-1 (Version None)
Quarter: 2006Q3

REPORT INFORMATION
  Report Type: 
  Country: None (occurrence: None)
  Receive Date: 20060711
  Receipt Date: 20060629
  Transmission Date: 20061208
  Serious: Yes (Other)
  Sender: FDA-Public Use
  Company Number: US-ROCHE-454135

PATIENT
  Age: 33 Year
  Sex: Male

DRUGS (2)
  1. COPEGUS [Suspect]
     Route: 048
     Dates: start: 20051215
  2. PEGASYS [Suspect]
     Route: 058
     Dates: start: 20051215

REACTIONS (3)
  - ABORTION THREATENED [None]
  - PREGNANCY WITH CONTRACEPTIVE DEVICE [None]
  - TRANSMISSION OF DRUG VIA SEMEN [None]
